FAERS Safety Report 10557395 (Version 1)
Quarter: 2014Q4

REPORT INFORMATION
  Report Type: Spontaneous
  Country: US (occurrence: None)
  Receive Date: 20141029
  Receipt Date: 20141029
  Transmission Date: 20150529
  Serious: Yes (Hospitalization)
  Sender: FDA-Public Use
  Company Number: 001819074A

PATIENT
  Age: 15 Year
  Sex: Female

DRUGS (1)
  1. X-OUT WASH-IN TREATMENT [Suspect]
     Active Substance: BENZOYL PEROXIDE
     Indication: ACNE
     Dosage: ONCE DAILY DERMAL
     Dates: start: 20140918, end: 20140919

REACTIONS (4)
  - Swelling face [None]
  - Erythema [None]
  - Blister [None]
  - Pyrexia [None]

NARRATIVE: CASE EVENT DATE: 20140920
